FAERS Safety Report 4675213-4 (Version None)
Quarter: 2005Q2

REPORT INFORMATION
  Report Type: 
  Country: None (occurrence: None)
  Receive Date: 20050526
  Receipt Date: 20050505
  Transmission Date: 20051028
  Serious: Yes (Hospitalization)
  Sender: FDA-Public Use
  Company Number: CAR_0016_2005

PATIENT
  Age: 67 Year
  Sex: Male
  Weight: 78 kg

DRUGS (3)
  1. DICLOFENAC [Suspect]
     Indication: PODAGRA
     Dosage: 50 MG ONCE PO
     Route: 048
  2. DICLOFENAC [Suspect]
     Dosage: 100 MG ONCE
  3. COLCHICINE [Concomitant]

REACTIONS (6)
  - ACUTE CORONARY SYNDROME [None]
  - ANGINA PECTORIS [None]
  - ARTERIOSPASM CORONARY [None]
  - CORONARY ARTERY THROMBOSIS [None]
  - MYOCARDIAL INFARCTION [None]
  - SELF-MEDICATION [None]
